FAERS Safety Report 10398649 (Version 1)
Quarter: 2014Q3

REPORT INFORMATION
  Report Type: Report from Study
  Country: US (occurrence: None)
  Receive Date: 20140819
  Receipt Date: 20140819
  Transmission Date: 20150326
  Serious: Yes (Hospitalization)
  Sender: FDA-Public Use
  Company Number: 2309589

PATIENT
  Age: 62 Year
  Sex: Male
  Weight: 117 kg

DRUGS (23)
  1. GEMCITABINE [Suspect]
     Active Substance: GEMCITABINE\GEMCITABINE HYDROCHLORIDE
     Indication: SOFT TISSUE DISORDER
     Dosage: CYCLICAL
     Route: 041
     Dates: start: 20140114, end: 20140617
  2. DOCETAXEL [Suspect]
     Active Substance: DOCETAXEL
     Indication: METASTASIS
     Route: 041
     Dates: start: 20140121, end: 201406
  3. BISACODYL. [Concomitant]
     Active Substance: BISACODYL
  4. GLICLAZIDE [Concomitant]
     Active Substance: GLICLAZIDE
  5. FUROSEMIDE. [Concomitant]
     Active Substance: FUROSEMIDE
  6. INVESTIGATIONAL DRUG [Suspect]
     Active Substance: INVESTIGATIONAL PRODUCT
     Indication: SARCOMA
     Dates: start: 20140114
  7. DOCETAXEL [Suspect]
     Active Substance: DOCETAXEL
     Indication: SOFT TISSUE DISORDER
     Route: 041
     Dates: start: 20140121, end: 201406
  8. ASPIRIN. [Concomitant]
     Active Substance: ASPIRIN
  9. GEMCITABINE [Suspect]
     Active Substance: GEMCITABINE\GEMCITABINE HYDROCHLORIDE
     Indication: METASTASIS
     Dosage: CYCLICAL
     Route: 041
     Dates: start: 20140114, end: 20140617
  10. INVESTIGATIONAL DRUG [Suspect]
     Active Substance: INVESTIGATIONAL PRODUCT
     Indication: METASTASIS
     Dates: start: 20140114
  11. DOCETAXEL [Suspect]
     Active Substance: DOCETAXEL
     Indication: SARCOMA
     Route: 041
     Dates: start: 20140121, end: 201406
  12. ACETAMINOPHEN W/HYDROCODONE) [Concomitant]
  13. LANSOPRAZOLE. [Concomitant]
     Active Substance: LANSOPRAZOLE
  14. AMIODARONE [Concomitant]
     Active Substance: AMIODARONE
  15. TORASEMIDE [Concomitant]
     Active Substance: TORSEMIDE
  16. POTASSIUM CHLORIDE. [Concomitant]
     Active Substance: POTASSIUM CHLORIDE
  17. METOPROLOL [Concomitant]
     Active Substance: METOPROLOL
  18. LEVOTHYROXINE [Concomitant]
     Active Substance: LEVOTHYROXINE
  19. PARACETAMOL [Concomitant]
     Active Substance: ACETAMINOPHEN
  20. GEMCITABINE [Suspect]
     Active Substance: GEMCITABINE\GEMCITABINE HYDROCHLORIDE
     Indication: SARCOMA
     Dosage: CYCLICAL
     Route: 041
     Dates: start: 20140114, end: 20140617
  21. INVESTIGATIONAL DRUG [Suspect]
     Active Substance: INVESTIGATIONAL PRODUCT
     Indication: SOFT TISSUE DISORDER
     Dates: start: 20140114
  22. SENNA [Concomitant]
     Active Substance: SENNA LEAF\SENNOSIDES\SENNOSIDES A AND B
  23. UBIDECARENONE [Concomitant]
     Active Substance: UBIDECARENONE

REACTIONS (13)
  - Haematocrit decreased [None]
  - Oedema [None]
  - Toxicity to various agents [None]
  - Pulmonary congestion [None]
  - International normalised ratio increased [None]
  - Haemoglobin decreased [None]
  - Pleural effusion [None]
  - Platelet count decreased [None]
  - Red blood cell count decreased [None]
  - Pneumonia [None]
  - Superior vena cava stenosis [None]
  - Gallbladder disorder [None]
  - Intracardiac mass [None]

NARRATIVE: CASE EVENT DATE: 20140317
